FAERS Safety Report 19267243 (Version 3)
Quarter: 2021Q2

REPORT INFORMATION
  Report Type: Spontaneous
  Country: PL (occurrence: PL)
  Receive Date: 20210517
  Receipt Date: 20210528
  Transmission Date: 20210717
  Serious: Yes (Life-Threatening, Hospitalization, Other)
  Sender: FDA-Public Use
  Company Number: NVSC2021PL105457

PATIENT
  Age: 53 Year
  Sex: Female

DRUGS (1)
  1. METHOTREXATE. [Suspect]
     Active Substance: METHOTREXATE
     Indication: PSORIASIS
     Dosage: 15 MG, QD
     Route: 048
     Dates: end: 20210111

REACTIONS (4)
  - Toxicity to various agents [Recovered/Resolved]
  - Urogenital haemorrhage [Unknown]
  - Overdose [Recovering/Resolving]
  - Mucosal haemorrhage [Unknown]
